FAERS Safety Report 15796318 (Version 1)
Quarter: 2019Q1

REPORT INFORMATION
  Report Type: Report from Study
  Country: GB (occurrence: GB)
  Receive Date: 20190108
  Receipt Date: 20190108
  Transmission Date: 20190417
  Serious: Yes (Death, Hospitalization)
  Sender: FDA-Public Use
  Company Number: GB-TEVA-2019-GB-995661

PATIENT
  Age: 43 Year
  Sex: Female
  Weight: 80.6 kg

DRUGS (32)
  1. TRASTUZUMAB. [Suspect]
     Active Substance: TRASTUZUMAB
     Indication: BREAST CANCER METASTATIC
     Route: 058
     Dates: start: 20150226, end: 20150508
  2. TRASTUZUMAB EMTANSINE [Suspect]
     Active Substance: ADO-TRASTUZUMAB EMTANSINE
     Indication: BREAST CANCER METASTATIC
     Route: 042
     Dates: start: 20150604, end: 20150806
  3. OXYGEN. [Concomitant]
     Active Substance: OXYGEN
     Route: 065
     Dates: start: 20150410
  4. DALTEPARIN [Concomitant]
     Active Substance: DALTEPARIN
     Dosage: 15000 UNIT
     Route: 058
     Dates: start: 201504
  5. SENNA [Concomitant]
     Active Substance: SENNA LEAF\SENNOSIDES\SENNOSIDES A AND B
     Dosage: 7.5 MG
     Route: 048
     Dates: start: 201504
  6. DEXAMETHASONE. [Concomitant]
     Active Substance: DEXAMETHASONE
     Indication: CONFUSIONAL STATE
     Route: 048
     Dates: start: 201502, end: 20150823
  7. BISOPROLOL [Concomitant]
     Active Substance: BISOPROLOL
     Route: 065
     Dates: start: 201504
  8. BISOPROLOL [Concomitant]
     Active Substance: BISOPROLOL
     Dosage: 5 MILLIGRAM DAILY;
     Route: 048
     Dates: start: 20150815
  9. PARACETAMOL [Concomitant]
     Active Substance: ACETAMINOPHEN
     Indication: HEADACHE
     Dosage: 2000 MG
     Route: 048
     Dates: start: 201502
  10. PERTUZUMAB. [Suspect]
     Active Substance: PERTUZUMAB
     Route: 042
     Dates: end: 20150508
  11. OXYGEN. [Concomitant]
     Active Substance: OXYGEN
     Dosage: INHALANT
     Route: 065
     Dates: start: 201502
  12. ONDANSETRON [Concomitant]
     Active Substance: ONDANSETRON
     Dosage: 8 MBQ DAILY;
     Route: 048
     Dates: start: 20150226, end: 20150424
  13. DOXYCYCLINE. [Concomitant]
     Active Substance: DOXYCYCLINE
     Route: 048
     Dates: start: 20150603, end: 20150608
  14. MORPHINE SULFATE. [Concomitant]
     Active Substance: MORPHINE SULFATE
     Dosage: 5 ML
     Route: 048
     Dates: start: 201502
  15. LORAZEPAM. [Concomitant]
     Active Substance: LORAZEPAM
     Dosage: 1 MG
     Route: 048
     Dates: start: 201502
  16. ONDANSETRON [Concomitant]
     Active Substance: ONDANSETRON
     Dosage: 48 MG
     Route: 065
     Dates: start: 201502
  17. GRANISETRON [Concomitant]
     Active Substance: GRANISETRON
     Dosage: ONCE
     Route: 042
     Dates: start: 20150226, end: 20150806
  18. PARACETAMOL [Concomitant]
     Active Substance: ACETAMINOPHEN
     Dosage: 1 GRAM DAILY;
     Route: 048
     Dates: start: 20150823, end: 20150825
  19. HYDROCORTISONE. [Concomitant]
     Active Substance: HYDROCORTISONE
     Dosage: ONCE
     Route: 042
     Dates: start: 20150226, end: 20150806
  20. BISOPROLOL [Concomitant]
     Active Substance: BISOPROLOL
     Dosage: 5 MILLIGRAM DAILY;
     Route: 048
     Dates: start: 20150811, end: 20150812
  21. SALBUTAMOL [Concomitant]
     Active Substance: ALBUTEROL
     Dosage: INHALATION
     Route: 065
     Dates: start: 20150602
  22. PACLITAXEL. [Suspect]
     Active Substance: PACLITAXEL
     Indication: BREAST CANCER METASTATIC
     Dosage: MOST RECENT DOSE RECEIVED ON 22/05/2015
     Dates: start: 20150226, end: 20150522
  23. PERTUZUMAB. [Suspect]
     Active Substance: PERTUZUMAB
     Indication: BREAST CANCER METASTATIC
     Route: 042
     Dates: start: 20150226
  24. METOCLOPRAMIDE. [Concomitant]
     Active Substance: METOCLOPRAMIDE
     Dosage: 10 MILLIGRAM DAILY;
     Route: 048
     Dates: start: 20150226, end: 201508
  25. TRAMADOL. [Concomitant]
     Active Substance: TRAMADOL
     Route: 048
     Dates: start: 201502
  26. LACTULOSE. [Concomitant]
     Active Substance: LACTULOSE
     Dosage: 15 ML
     Route: 048
     Dates: start: 20150127, end: 20150801
  27. SALBUTAMOL [Concomitant]
     Active Substance: ALBUTEROL
     Indication: MALAISE
     Dosage: 2.5 MG,NEBULIZED
     Route: 065
     Dates: start: 201504
  28. DEXAMETHASONE. [Concomitant]
     Active Substance: DEXAMETHASONE
     Route: 042
     Dates: start: 20150823, end: 20150823
  29. CHLORPHENAMINE [Concomitant]
     Active Substance: CHLORPHENIRAMINE MALEATE
     Dosage: ONCE
     Route: 042
     Dates: start: 20150226, end: 20150806
  30. DOXYCYCLINE. [Concomitant]
     Active Substance: DOXYCYCLINE
     Indication: MALAISE
     Route: 065
     Dates: start: 201505
  31. ZOPICLONE [Concomitant]
     Active Substance: ZOPICLONE
     Dosage: 3.75 MG
     Route: 048
     Dates: start: 201502
  32. ADENOSINE. [Concomitant]
     Active Substance: ADENOSINE
     Route: 042
     Dates: start: 20150808, end: 20150808

REACTIONS (18)
  - Rash [Not Recovered/Not Resolved]
  - Pneumonia [Not Recovered/Not Resolved]
  - Lower respiratory tract infection [Recovered/Resolved with Sequelae]
  - Dyspnoea [Not Recovered/Not Resolved]
  - Tachycardia [Recovered/Resolved with Sequelae]
  - Nausea [Recovered/Resolved]
  - Sepsis [Recovered/Resolved with Sequelae]
  - Incontinence [Not Recovered/Not Resolved]
  - Dry mouth [Not Recovered/Not Resolved]
  - Malaise [Not Recovered/Not Resolved]
  - Supraventricular tachycardia [Recovered/Resolved with Sequelae]
  - Depressed mood [Not Recovered/Not Resolved]
  - Vomiting [Unknown]
  - Dizziness [Not Recovered/Not Resolved]
  - Nausea [Not Recovered/Not Resolved]
  - Dyspepsia [Not Recovered/Not Resolved]
  - Headache [Not Recovered/Not Resolved]
  - Confusional state [Not Recovered/Not Resolved]

NARRATIVE: CASE EVENT DATE: 20150410
